FAERS Safety Report 12403526 (Version 1)
Quarter: 2016Q2

REPORT INFORMATION
  Report Type: Spontaneous
  Country: RU (occurrence: RU)
  Receive Date: 20160525
  Receipt Date: 20160525
  Transmission Date: 20160815
  Serious: Yes (Other)
  Sender: FDA-Public Use
  Company Number: RU-SHIRE-RU201606233

PATIENT
  Age: 5 Year
  Sex: Male

DRUGS (1)
  1. ELAPRASE [Suspect]
     Active Substance: IDURSULFASE
     Indication: PRODUCT USED FOR UNKNOWN INDICATION
     Dosage: 0.5 MG/KG, 1X/WEEK
     Route: 041

REACTIONS (9)
  - Livedo reticularis [Unknown]
  - Body temperature increased [Unknown]
  - Vasospasm [Unknown]
  - Anxiety [Recovered/Resolved]
  - Nausea [Unknown]
  - Cyanosis [Unknown]
  - Hypertension [Recovered/Resolved]
  - Infusion related reaction [Unknown]
  - Retching [Unknown]

NARRATIVE: CASE EVENT DATE: 20160519
